FAERS Safety Report 4452488-8 (Version None)
Quarter: 2004Q3

REPORT INFORMATION
  Report Type: 
  Country: None (occurrence: None)
  Receive Date: 20040916
  Receipt Date: 20040831
  Transmission Date: 20050211
  Serious: Yes (Hospitalization)
  Sender: FDA-Public Use
  Company Number: 430002X04GBR

PATIENT
  Age: 54 Year
  Sex: Female

DRUGS (1)
  1. NOVANTRONE [Suspect]
     Indication: B-CELL LYMPHOMA

REACTIONS (17)
  - ABNORMAL BEHAVIOUR [None]
  - ASPIRATION BONE MARROW ABNORMAL [None]
  - ASTHENIA [None]
  - BLOOD LACTATE DEHYDROGENASE INCREASED [None]
  - DIZZINESS [None]
  - HYPOTENSION [None]
  - IRRITABILITY [None]
  - JAUNDICE [None]
  - MALAISE [None]
  - MENTAL DISORDER [None]
  - MICROANGIOPATHIC HAEMOLYTIC ANAEMIA [None]
  - PYREXIA [None]
  - RASH GENERALISED [None]
  - RETICULOCYTOSIS [None]
  - TACHYCARDIA [None]
  - THROMBOTIC THROMBOCYTOPENIC PURPURA [None]
  - VOMITING [None]
